FAERS Safety Report 24975399 (Version 3)
Quarter: 2025Q1

REPORT INFORMATION
  Report Type: Report from Study
  Country: CA (occurrence: CA)
  Receive Date: 20250217
  Receipt Date: 20250325
  Transmission Date: 20250409
  Serious: Yes (Death, Other)
  Sender: ABBVIE
  Company Number: CA-ABBVIE-6136847

PATIENT
  Age: 71 Year
  Sex: Male

DRUGS (16)
  1. LUPRON [Suspect]
     Active Substance: LEUPROLIDE ACETATE
     Indication: Prostate cancer
     Dosage: FORM STRENGTH: 30 MG
     Route: 030
     Dates: start: 20221017, end: 20241010
  2. LUPRON [Suspect]
     Active Substance: LEUPROLIDE ACETATE
     Dosage: FORM STRENGTH: 30 MG
     Route: 030
     Dates: start: 20220919
  3. CASODEX [Concomitant]
     Active Substance: BICALUTAMIDE
     Indication: Product used for unknown indication
  4. HABITROL [Concomitant]
     Active Substance: NICOTINE
     Indication: Product used for unknown indication
     Route: 062
     Dates: start: 20240916, end: 20241024
  5. PROCHLORPERAZINE [Concomitant]
     Active Substance: PROCHLORPERAZINE
     Indication: Nausea
     Route: 048
     Dates: start: 20241017, end: 20241024
  6. CRESTOR [Concomitant]
     Active Substance: ROSUVASTATIN CALCIUM
     Indication: Product used for unknown indication
     Route: 048
     Dates: end: 20241024
  7. VENTOLIN [Concomitant]
     Active Substance: ALBUTEROL SULFATE
     Indication: Wheezing
     Route: 055
     Dates: start: 20240916, end: 20241024
  8. JANUMET [Concomitant]
     Active Substance: METFORMIN HYDROCHLORIDE\SITAGLIPTIN PHOSPHATE
     Indication: Product used for unknown indication
     Route: 048
     Dates: end: 20241024
  9. TRELEGY ELLIPTA [Concomitant]
     Active Substance: FLUTICASONE FUROATE\UMECLIDINIUM BROMIDE\VILANTEROL TRIFENATATE
     Indication: Product used for unknown indication
     Dates: start: 20240916, end: 20241024
  10. FOLIC ACID [Concomitant]
     Active Substance: FOLIC ACID
     Indication: Product used for unknown indication
     Route: 048
     Dates: start: 20240310, end: 20241024
  11. Diamicron [Concomitant]
     Indication: Product used for unknown indication
     Route: 048
     Dates: end: 20241024
  12. TYLENOL [Concomitant]
     Active Substance: ACETAMINOPHEN
     Indication: Product used for unknown indication
     Dosage: STRENGTH: 325 MG
     Route: 048
     Dates: start: 20240916, end: 20241024
  13. DILAUDID [Concomitant]
     Active Substance: HYDROMORPHONE HYDROCHLORIDE
     Indication: Pain
     Route: 048
     Dates: start: 20240310, end: 20241024
  14. SYNTHROID [Concomitant]
     Active Substance: LEVOTHYROXINE SODIUM
     Indication: Product used for unknown indication
     Dosage: STRENGTH: 100 MCG?ONE) TIME EACH DAY BEFORE BREAKFAST
     Route: 048
     Dates: end: 20241024
  15. IMODIUM [Concomitant]
     Active Substance: LOPERAMIDE HYDROCHLORIDE
     Indication: Diarrhoea
     Dates: start: 20241017, end: 20241024
  16. Akynzeo [Concomitant]
     Indication: Product used for unknown indication
     Route: 048
     Dates: start: 20241017, end: 20241024

REACTIONS (35)
  - Lung neoplasm malignant [Fatal]
  - Cholelithiasis [Unknown]
  - Gallbladder polyp [Unknown]
  - Cholecystitis acute [Unknown]
  - Hepatic lesion [Unknown]
  - Intervertebral disc protrusion [Unknown]
  - Blood calcium decreased [Unknown]
  - Hypovolaemia [Unknown]
  - Sepsis [Unknown]
  - Atelectasis [Unknown]
  - Rib fracture [Unknown]
  - Lung cancer metastatic [Unknown]
  - Gallbladder enlargement [Unknown]
  - Renal cyst [Unknown]
  - Hepatic enzyme increased [Unknown]
  - Ascites [Unknown]
  - Back pain [Unknown]
  - Anal incontinence [Unknown]
  - Cauda equina syndrome [Unknown]
  - Intervertebral disc degeneration [Unknown]
  - Intervertebral disc degeneration [Unknown]
  - Liver function test abnormal [Unknown]
  - Hepatic lesion [Unknown]
  - Normocytic anaemia [Unknown]
  - Haematuria [Unknown]
  - Fatigue [Unknown]
  - Iron deficiency [Unknown]
  - Anaemia of chronic disease [Unknown]
  - Dyspnoea [Unknown]
  - Chronic obstructive pulmonary disease [Unknown]
  - Tumour lysis syndrome [Unknown]
  - Blood phosphorus increased [Unknown]
  - Blood potassium increased [Unknown]
  - Pneumonia [Recovered/Resolved]
  - Intervertebral disc space narrowing [Unknown]
